FAERS Safety Report 10173395 (Version 1)
Quarter: 2014Q2

REPORT INFORMATION
  Report Type: Spontaneous
  Country: US (occurrence: None)
  Receive Date: 20140514
  Receipt Date: 20140514
  Transmission Date: 20141212
  Serious: Yes (Hospitalization)
  Sender: FDA-Public Use
  Company Number: None

PATIENT
  Age: 65 Year
  Sex: Male
  Weight: 106.14 kg

DRUGS (2)
  1. XARELTO 20 MG [Suspect]
     Indication: ATRIAL FIBRILLATION
     Dosage: 1, ONCE DAILY
     Dates: start: 20140403, end: 20140416
  2. XARELTO 20 MG [Suspect]
     Indication: THROMBOSIS PROPHYLAXIS
     Dosage: 1, ONCE DAILY
     Dates: start: 20140403, end: 20140416

REACTIONS (7)
  - Dizziness [None]
  - Dizziness [None]
  - Gastric haemorrhage [None]
  - Faeces discoloured [None]
  - Haemoglobin decreased [None]
  - Gastritis [None]
  - Mucosal erosion [None]
